FAERS Safety Report 4467115-3 (Version None)
Quarter: 2004Q4

REPORT INFORMATION
  Report Type: 
  Country: None (occurrence: None)
  Receive Date: 20041006
  Receipt Date: 20040924
  Transmission Date: 20050328
  Serious: Yes (Hospitalization)
  Sender: FDA-Public Use
  Company Number: US-BRISTOL-MYERS SQUIBB COMPANY-12712469

PATIENT
  Age: 58 Year
  Sex: Male

DRUGS (3)
  1. CARBOPLATIN [Suspect]
     Indication: NEOPLASM MALIGNANT
     Dosage: AUC 2
  2. TAXOL [Suspect]
     Indication: NEOPLASM MALIGNANT
  3. CELEBREX [Suspect]
     Dosage: VIA PEG TUBE
     Route: 050

REACTIONS (2)
  - ILEUS [None]
  - MEDICAL DEVICE COMPLICATION [None]
